FAERS Safety Report 8854841 (Version 4)
Quarter: 2013Q2

REPORT INFORMATION
  Report Type: Spontaneous
  Country: US (occurrence: US)
  Receive Date: 20121023
  Receipt Date: 20130401
  Transmission Date: 20140414
  Serious: Yes (Hospitalization, Other)
  Sender: FDA-Public Use
  Company Number: PHEH2012US020508

PATIENT
  Sex: Female

DRUGS (17)
  1. VIVELLE DOT [Suspect]
     Dosage: 0.075 MG, TWICE WEEKLY
     Route: 062
     Dates: start: 2001
  2. VIVELLE DOT [Suspect]
     Dosage: 0.075 MG, TWICE WEEKLY
     Route: 062
  3. NEXIUM-MUPS//ESOMEPRAZOLE SODIUM [Concomitant]
     Dosage: UNK UKN, UNK
  4. VERAPAMIL [Concomitant]
     Dosage: UNK UKN, UNK
  5. POTASSIUM [Concomitant]
     Dosage: UNK UKN, UNK
  6. FUROSEMIDE [Concomitant]
     Dosage: UNK UKN, UNK
  7. SINGULAIR [Concomitant]
     Dosage: UNK UKN, UNK
  8. LEXAPRO [Concomitant]
     Indication: DEPRESSION
     Dosage: UNK UKN, UNK
  9. XANAX [Concomitant]
     Indication: ANXIETY
     Dosage: UNK UKN, UNK
  10. XOPENEX [Concomitant]
     Dosage: UNK UKN, UNK
  11. BUSPAR [Concomitant]
     Dosage: UNK UKN, UNK
  12. LASIX [Concomitant]
     Dosage: UNK UKN, UNK
  13. FERROUS SULFATE [Concomitant]
     Dosage: UNK UKN, UNK
  14. ZETIA [Concomitant]
     Dosage: UNK UKN, UNK
  15. SIMVASTATIN [Concomitant]
     Dosage: UNK UKN, UNK
  16. IRON SULFATE [Concomitant]
     Indication: ANAEMIA
     Dosage: UNK UKN, UNK
  17. HYDROCODONE [Concomitant]
     Dosage: UNK UKN, UNK

REACTIONS (7)
  - Chronic obstructive pulmonary disease [Unknown]
  - Bronchitis chronic [Unknown]
  - Pneumonia [Unknown]
  - Pulmonary thrombosis [Unknown]
  - Diabetes mellitus [Unknown]
  - Amnesia [Unknown]
  - Product adhesion issue [Unknown]
